FAERS Safety Report 7493539-6 (Version None)
Quarter: 2011Q2

REPORT INFORMATION
  Report Type: 
  Country: None (occurrence: None)
  Receive Date: 20110520
  Receipt Date: 20110321
  Transmission Date: 20111010
  Serious: Yes (Other)
  Sender: FDA-Public Use
  Company Number: CHPA2011US06904

PATIENT
  Sex: Female

DRUGS (3)
  1. DRUG THERAPY NOS [Suspect]
     Indication: MUSCULOSKELETAL PAIN
     Dosage: UNK, UNK
     Dates: start: 20090101
  2. EXCEDRIN UNKNOWN [Suspect]
     Indication: MIGRAINE
     Dosage: UNK, UNK
     Route: 048
  3. EXCEDRIN UNKNOWN [Suspect]
     Indication: PAIN

REACTIONS (5)
  - HEADACHE [None]
  - MUSCULOSKELETAL PAIN [None]
  - FATIGUE [None]
  - SHOULDER ARTHROPLASTY [None]
  - FEELING ABNORMAL [None]
